FAERS Safety Report 8090435-0 (Version None)
Quarter: 2012Q1

REPORT INFORMATION
  Report Type: 
  Country: None (occurrence: None)
  Receive Date: 20120129
  Receipt Date: 20111201
  Transmission Date: 20120608
  Serious: No
  Sender: FDA-Public Use
  Company Number: US-ABBOTT-11P-163-0879907-00

PATIENT
  Sex: Female
  Weight: 99.88 kg

DRUGS (7)
  1. IMURAN [Concomitant]
     Indication: RHEUMATOID ARTHRITIS
     Dosage: DOSE HAD FLUCTUATED
  2. HUMIRA [Suspect]
     Route: 058
     Dates: start: 20080101, end: 20080101
  3. HUMIRA [Suspect]
     Route: 058
     Dates: start: 20090101, end: 20090101
  4. FOLIC ACID [Concomitant]
     Indication: RHEUMATOID ARTHRITIS
  5. HUMIRA [Suspect]
     Indication: CROHN'S DISEASE
     Route: 058
     Dates: start: 20080101, end: 20080101
  6. HUMIRA [Suspect]
     Route: 058
     Dates: start: 20090101
  7. UNKNOWN MEDICATIONS [Concomitant]
     Indication: HYPERTENSION

REACTIONS (3)
  - INJECTION SITE PAIN [None]
  - DIARRHOEA [None]
  - ABDOMINAL PAIN [None]
